FAERS Safety Report 6402684-5 (Version None)
Quarter: 2009Q4

REPORT INFORMATION
  Report Type: 
  Country: None (occurrence: None)
  Receive Date: 20091015
  Receipt Date: 20091009
  Transmission Date: 20100525
  Serious: Yes (Other)
  Sender: FDA-Public Use
  Company Number: US-JNJFOC-20090907521

PATIENT
  Age: 3 Year
  Sex: Male
  Weight: 13.61 kg

DRUGS (2)
  1. TYLENOL (CAPLET) [Suspect]
     Route: 048
  2. TYLENOL (CAPLET) [Suspect]
     Indication: PYREXIA
     Dosage: 160 MG EVERY 4 HOURS (3 DOSES TOTAL) ONE DAY
     Route: 048

REACTIONS (3)
  - DRUG INEFFECTIVE [None]
  - FEBRILE CONVULSION [None]
  - TRANSMISSION OF AN INFECTIOUS AGENT VIA A MEDICINAL PRODUCT [None]
